FAERS Safety Report 13412743 (Version 3)
Quarter: 2018Q1

REPORT INFORMATION
  Report Type: Spontaneous
  Country: US (occurrence: US)
  Receive Date: 20170406
  Receipt Date: 20180312
  Transmission Date: 20180508
  Serious: No
  Sender: FDA-Public Use
  Company Number: US-JNJFOC-20170310900

PATIENT
  Age: 21 Year
  Sex: Male

DRUGS (30)
  1. RISPERDAL [Suspect]
     Active Substance: RISPERIDONE
     Indication: INTERMITTENT EXPLOSIVE DISORDER
     Route: 048
     Dates: start: 20080131, end: 20080706
  2. RISPERDAL [Suspect]
     Active Substance: RISPERIDONE
     Indication: AFFECTIVE DISORDER
     Route: 048
     Dates: start: 20080131, end: 20080706
  3. INVEGA [Suspect]
     Active Substance: PALIPERIDONE
     Indication: BIPOLAR DISORDER
     Route: 048
     Dates: start: 20150508
  4. RISPERDAL [Suspect]
     Active Substance: RISPERIDONE
     Indication: BIPOLAR DISORDER
     Route: 048
     Dates: start: 20080131, end: 20080706
  5. RISPERDAL [Suspect]
     Active Substance: RISPERIDONE
     Indication: BIPOLAR DISORDER
     Route: 048
     Dates: start: 20120313, end: 20120704
  6. RISPERDAL [Suspect]
     Active Substance: RISPERIDONE
     Indication: AFFECTIVE DISORDER
     Route: 048
     Dates: start: 20120313, end: 20120704
  7. RISPERIDONE. [Suspect]
     Active Substance: RISPERIDONE
     Indication: BIPOLAR DISORDER
     Route: 048
     Dates: start: 2010
  8. RISPERIDONE. [Suspect]
     Active Substance: RISPERIDONE
     Indication: INTERMITTENT EXPLOSIVE DISORDER
     Dosage: IN VARYING DOSES OF 0.25, 0.5, 01, 02 AND 03 MG
     Route: 048
     Dates: start: 20110107, end: 20120221
  9. RISPERIDONE. [Suspect]
     Active Substance: RISPERIDONE
     Indication: BIPOLAR DISORDER
     Dosage: IN VARYING DOSES OF 0.25, 0.5, 01, 02 AND 03 MG
     Route: 048
     Dates: start: 20110107, end: 20120221
  10. INVEGA [Suspect]
     Active Substance: PALIPERIDONE
     Indication: INTERMITTENT EXPLOSIVE DISORDER
     Dosage: IN VARYING DOSES OF 06 AND 09 MG
     Route: 048
     Dates: start: 20130806, end: 20131105
  11. SEROQUEL [Suspect]
     Active Substance: QUETIAPINE FUMARATE
     Indication: AFFECTIVE DISORDER
     Route: 065
     Dates: start: 20101202
  12. RISPERIDONE. [Suspect]
     Active Substance: RISPERIDONE
     Indication: INTERMITTENT EXPLOSIVE DISORDER
     Route: 048
     Dates: start: 2010
  13. INVEGA [Suspect]
     Active Substance: PALIPERIDONE
     Indication: BIPOLAR DISORDER
     Dosage: IN VARYING DOSES OF 06 AND 09 MG
     Route: 048
     Dates: start: 20130615, end: 20130703
  14. SEROQUEL [Suspect]
     Active Substance: QUETIAPINE FUMARATE
     Indication: AFFECTIVE DISORDER
     Route: 065
     Dates: start: 20131122
  15. RISPERDAL [Suspect]
     Active Substance: RISPERIDONE
     Indication: INTERMITTENT EXPLOSIVE DISORDER
     Route: 048
     Dates: start: 20120313, end: 20120704
  16. INVEGA [Suspect]
     Active Substance: PALIPERIDONE
     Indication: BIPOLAR DISORDER
     Dosage: IN VARYING DOSES OF 06 AND 09 MG
     Route: 048
     Dates: start: 20130806, end: 20131105
  17. INVEGA [Suspect]
     Active Substance: PALIPERIDONE
     Indication: AFFECTIVE DISORDER
     Dosage: IN VARYING DOSES OF 06 AND 09 MG
     Route: 048
     Dates: start: 20131107, end: 20150115
  18. INVEGA [Suspect]
     Active Substance: PALIPERIDONE
     Indication: AFFECTIVE DISORDER
     Route: 048
     Dates: start: 20150508
  19. RISPERIDONE. [Suspect]
     Active Substance: RISPERIDONE
     Indication: AFFECTIVE DISORDER
     Route: 048
     Dates: start: 2010
  20. RISPERIDONE. [Suspect]
     Active Substance: RISPERIDONE
     Indication: AFFECTIVE DISORDER
     Dosage: IN VARYING DOSES OF 0.25, 0.5, 01, 02 AND 03 MG
     Route: 048
     Dates: start: 20110107, end: 20120221
  21. RISPERIDONE. [Suspect]
     Active Substance: RISPERIDONE
     Indication: INTERMITTENT EXPLOSIVE DISORDER
     Dosage: IN VARYING DOSES OF 0.25, 0.5, 01, 02 AND 03 MG
     Route: 048
     Dates: start: 20080801, end: 20081015
  22. RISPERIDONE. [Suspect]
     Active Substance: RISPERIDONE
     Indication: BIPOLAR DISORDER
     Dosage: IN VARYING DOSES OF 0.25, 0.5, 01, 02 AND 03 MG
     Route: 048
     Dates: start: 20080801, end: 20081015
  23. INVEGA [Suspect]
     Active Substance: PALIPERIDONE
     Indication: BIPOLAR DISORDER
     Dosage: IN VARYING DOSES OF 06 AND 09 MG
     Route: 048
     Dates: start: 20131107, end: 20150115
  24. RISPERIDONE. [Suspect]
     Active Substance: RISPERIDONE
     Indication: AFFECTIVE DISORDER
     Dosage: IN VARYING DOSES OF 0.25, 0.5, 01, 02 AND 03 MG
     Route: 048
     Dates: start: 20080801, end: 20081015
  25. INVEGA [Suspect]
     Active Substance: PALIPERIDONE
     Indication: INTERMITTENT EXPLOSIVE DISORDER
     Dosage: IN VARYING DOSES OF 06 AND 09 MG
     Route: 048
     Dates: start: 20130615, end: 20130703
  26. INVEGA [Suspect]
     Active Substance: PALIPERIDONE
     Indication: AFFECTIVE DISORDER
     Dosage: IN VARYING DOSES OF 06 AND 09 MG
     Route: 048
     Dates: start: 20130615, end: 20130703
  27. INVEGA [Suspect]
     Active Substance: PALIPERIDONE
     Indication: AFFECTIVE DISORDER
     Dosage: IN VARYING DOSES OF 06 AND 09 MG
     Route: 048
     Dates: start: 20130806, end: 20131105
  28. INVEGA [Suspect]
     Active Substance: PALIPERIDONE
     Indication: INTERMITTENT EXPLOSIVE DISORDER
     Dosage: IN VARYING DOSES OF 06 AND 09 MG
     Route: 048
     Dates: start: 20131107, end: 20150115
  29. INVEGA [Suspect]
     Active Substance: PALIPERIDONE
     Indication: INTERMITTENT EXPLOSIVE DISORDER
     Route: 048
     Dates: start: 20150508
  30. SEROQUEL [Suspect]
     Active Substance: QUETIAPINE FUMARATE
     Indication: AFFECTIVE DISORDER
     Route: 065
     Dates: start: 2015

REACTIONS (2)
  - Emotional distress [Unknown]
  - Gynaecomastia [Unknown]

NARRATIVE: CASE EVENT DATE: 20131122
